FAERS Safety Report 9496892 (Version 1)
Quarter: 2013Q3

REPORT INFORMATION
  Report Type: Spontaneous
  Country: AT (occurrence: None)
  Receive Date: 20130830
  Receipt Date: 20130830
  Transmission Date: 20140515
  Serious: Yes (Hospitalization)
  Sender: FDA-Public Use
  Company Number: 2013P1018780

PATIENT
  Age: 29 Year
  Sex: Female

DRUGS (1)
  1. FUROSEMIDE [Suspect]

REACTIONS (9)
  - Vomiting [None]
  - Diarrhoea [None]
  - Asthenia [None]
  - Dizziness [None]
  - Hypokalaemia [None]
  - Hyponatraemia [None]
  - Metabolic alkalosis [None]
  - Renal failure [None]
  - Rhabdomyolysis [None]
